FAERS Safety Report 9443071 (Version 1)
Quarter: 2013Q3

REPORT INFORMATION
  Report Type: Spontaneous
  Country: GB (occurrence: GB)
  Receive Date: 20130806
  Receipt Date: 20130806
  Transmission Date: 20140515
  Serious: Yes (Other)
  Sender: FDA-Public Use
  Company Number: GB-WATSON-2013-13758

PATIENT
  Age: 57 Year
  Sex: Male

DRUGS (3)
  1. METRONIDAZOLE (UNKNOWN) [Suspect]
     Indication: ROSACEA
     Dosage: 400 MG, TID
     Route: 048
     Dates: start: 20130704, end: 20130704
  2. SIMVASTATIN [Concomitant]
     Indication: HYPERCHOLESTEROLAEMIA
     Dosage: 20 MG, UNKNOWN
     Route: 065
  3. LISINOPRIL [Concomitant]
     Indication: HYPERTENSION
     Dosage: 1 MG, UNKNOWN
     Route: 065

REACTIONS (2)
  - Eye swelling [Unknown]
  - Pruritus generalised [Unknown]
